FAERS Safety Report 5254253-0 (Version None)
Quarter: 2007Q1

REPORT INFORMATION
  Report Type: 
  Country: None (occurrence: None)
  Receive Date: 20070302
  Receipt Date: 20070227
  Transmission Date: 20070707
  Serious: Yes (Hospitalization)
  Sender: FDA-Public Use
  Company Number: US-GLAXOSMITHKLINE-A0641164A

PATIENT
  Age: 75 Year
  Sex: Female

DRUGS (6)
  1. COREG [Suspect]
     Indication: HYPERTENSION
     Dosage: 25MG TWICE PER DAY
     Route: 048
     Dates: start: 20061201, end: 20061201
  2. AGGRENOX [Concomitant]
  3. HYZAAR [Concomitant]
  4. TOPROL-XL [Concomitant]
  5. ARIMIDEX [Concomitant]
  6. CADUET [Concomitant]

REACTIONS (5)
  - ASTHENIA [None]
  - BLOOD PRESSURE DIASTOLIC DECREASED [None]
  - PULSE ABSENT [None]
  - SYNCOPE [None]
  - VOMITING [None]
